FAERS Safety Report 5214910-9 (Version None)
Quarter: 2007Q1

REPORT INFORMATION
  Report Type: 
  Country: None (occurrence: None)
  Receive Date: 20061108
  Receipt Date: 20060517
  Transmission Date: 20070707
  Serious: Yes (Other)
  Sender: FDA-Public Use
  Company Number: PHEH2006US06574

PATIENT
  Sex: Female

DRUGS (1)
  1. ESTROGEN(ESTROGENS) [Suspect]

REACTIONS (1)
  - MYOCARDIAL INFARCTION [None]
